FAERS Safety Report 20565082 (Version 1)
Quarter: 2022Q1

REPORT INFORMATION
  Report Type: Other
  Country: JP (occurrence: JP)
  Receive Date: 20220308
  Receipt Date: 20220308
  Transmission Date: 20220423
  Serious: Yes (Other)
  Sender: FDA-Public Use
  Company Number: JP-CHUGAI-2022007139

PATIENT
  Age: 79 Year
  Sex: Male
  Weight: 70.4 kg

DRUGS (4)
  1. ATEZOLIZUMAB [Suspect]
     Active Substance: ATEZOLIZUMAB
     Indication: Lung adenocarcinoma
     Dosage: 1200 MILLIGRAM
     Route: 041
     Dates: start: 20210325, end: 20211022
  2. CARBOPLATIN [Concomitant]
     Active Substance: CARBOPLATIN
     Indication: Lung adenocarcinoma
     Dosage: 450 MILLIGRAM
     Route: 041
     Dates: start: 20210325, end: 20210625
  3. PACLITAXEL [Concomitant]
     Active Substance: PACLITAXEL
     Indication: Lung adenocarcinoma
     Dosage: 190 MILLIGRAM
     Route: 041
     Dates: start: 20210325, end: 2021
  4. PACLITAXEL [Concomitant]
     Active Substance: PACLITAXEL
     Dosage: 190 MILLIGRAM
     Route: 041
     Dates: start: 20210625, end: 20210702

REACTIONS (1)
  - Neutropenia [Recovered/Resolved]

NARRATIVE: CASE EVENT DATE: 20210409
